FAERS Safety Report 11646759 (Version 2)
Quarter: 2016Q2

REPORT INFORMATION
  Report Type: Spontaneous
  Country: US (occurrence: US)
  Receive Date: 20151020
  Receipt Date: 20160429
  Transmission Date: 20160815
  Serious: No
  Sender: FDA-Public Use
  Company Number: US-ROCHE-1626675

PATIENT
  Sex: Male
  Weight: 77.18 kg

DRUGS (2)
  1. WARFARIN [Concomitant]
     Active Substance: WARFARIN
  2. ESBRIET [Suspect]
     Active Substance: PIRFENIDONE
     Indication: IDIOPATHIC PULMONARY FIBROSIS
     Dosage: TOTAL: 2403 MG DAILY
     Route: 048
     Dates: start: 20150806

REACTIONS (4)
  - Rash pruritic [Unknown]
  - Eye disorder [Unknown]
  - Eye pruritus [Unknown]
  - Eye swelling [Unknown]
